FAERS Safety Report 9353954 (Version 2)
Quarter: 2013Q4

REPORT INFORMATION
  Report Type: Spontaneous
  Country: US (occurrence: US)
  Receive Date: 20130618
  Receipt Date: 20131028
  Transmission Date: 20140711
  Serious: Yes (Life-Threatening, Hospitalization, Other)
  Sender: FDA-Public Use
  Company Number: US-BAYER-2013-074772

PATIENT
  Age: 19 Year
  Sex: Female
  Weight: 57.14 kg

DRUGS (4)
  1. YAZ [Suspect]
     Indication: CONTRACEPTION
  2. YASMIN [Suspect]
     Indication: CONTRACEPTION
  3. SERTRALINE [Concomitant]
     Dosage: 150 MG, QD
     Route: 048
  4. LAMICTAL [Concomitant]
     Dosage: 200 MG, ONCE
     Route: 048

REACTIONS (9)
  - Pulmonary embolism [Recovered/Resolved]
  - Injury [Recovered/Resolved]
  - Pain [Recovered/Resolved]
  - Emotional distress [None]
  - Anxiety [None]
  - Anhedonia [None]
  - Fear of disease [None]
  - Pulmonary embolism [Recovered/Resolved]
  - Transient ischaemic attack [None]
